FAERS Safety Report 13237047 (Version 15)
Quarter: 2019Q2

REPORT INFORMATION
  Report Type: Report from Study
  Country: CA (occurrence: CA)
  Receive Date: 20170215
  Receipt Date: 20190422
  Transmission Date: 20190711
  Serious: Yes (Hospitalization, Other)
  Sender: FDA-Public Use
  Company Number: CA-BRISTOL-MYERS SQUIBB COMPANY-BMS-2017-011067

PATIENT
  Age: 78 Year
  Sex: Male

DRUGS (1)
  1. ABATACEPT [Suspect]
     Active Substance: ABATACEPT
     Indication: RHEUMATOID ARTHRITIS
     Dosage: 750 MG, Q4WK
     Route: 042
     Dates: start: 20120807

REACTIONS (14)
  - Nose deformity [Recovered/Resolved]
  - Productive cough [Unknown]
  - Nasopharyngitis [Unknown]
  - Cough [Not Recovered/Not Resolved]
  - Lung infection [Unknown]
  - Dyspnoea [Unknown]
  - Neoplasm [Unknown]
  - Cancer surgery [Unknown]
  - Fatigue [Not Recovered/Not Resolved]
  - Squamous cell carcinoma [Recovered/Resolved]
  - Asthma [Recovering/Resolving]
  - Lower respiratory tract infection [Recovering/Resolving]
  - Pain [Not Recovered/Not Resolved]
  - Off label use [Unknown]

NARRATIVE: CASE EVENT DATE: 20170313
